FAERS Safety Report 7281403-7 (Version None)
Quarter: 2011Q1

REPORT INFORMATION
  Report Type: 
  Country: None (occurrence: None)
  Receive Date: 20110208
  Receipt Date: 20110128
  Transmission Date: 20110831
  Serious: Yes (Life-Threatening)
  Sender: FDA-Public Use
  Company Number: JP-ELI_LILLY_AND_COMPANY-JP201101006943

PATIENT
  Age: 69 Year
  Sex: Male

DRUGS (3)
  1. ALIMTA [Suspect]
     Indication: LUNG NEOPLASM MALIGNANT
     Dosage: 996 MG, UNK
     Route: 042
     Dates: start: 20090727, end: 20090811
  2. PANVITAN [Concomitant]
     Dosage: 1 G, DAILY (1/D), 0.5 MG AS FOLIC ACID
     Route: 048
     Dates: start: 20090714, end: 20090916
  3. CYANOCOBALAMIN [Concomitant]
     Route: 065
     Dates: start: 20090101

REACTIONS (1)
  - SYNCOPE [None]
